FAERS Safety Report 4552022-8 (Version None)
Quarter: 2004Q4

REPORT INFORMATION
  Report Type: 
  Country: None (occurrence: None)
  Receive Date: 20041217
  Receipt Date: 20040818
  Transmission Date: 20050328
  Serious: No
  Sender: FDA-Public Use
  Company Number: 2004-BP-07010BP

PATIENT
  Sex: Female

DRUGS (3)
  1. SPIRIVA [Suspect]
     Indication: CHRONIC OBSTRUCTIVE AIRWAYS DISEASE
     Dosage: 18 MCG (18 MCG)IH
     Route: 055
  2. OXYGEN (OXYGEN) [Concomitant]
  3. ADVAIR (SERETIDE MITE) [Concomitant]

REACTIONS (2)
  - DRY MOUTH [None]
  - DRY THROAT [None]
